FAERS Safety Report 22604257 (Version 4)
Quarter: 2024Q3

REPORT INFORMATION
  Report Type: Report from Study
  Country: IL (occurrence: IL)
  Receive Date: 20230615
  Receipt Date: 20240827
  Transmission Date: 20241017
  Serious: Yes (Other)
  Sender: TAKEDA
  Company Number: IL-TAKEDA-2023TUS058262

PATIENT
  Sex: Female

DRUGS (2)
  1. HUMAN IMMUNOGLOBULIN G\HYALURONIDASE RECOMBINANT HUMAN [Suspect]
     Active Substance: HUMAN IMMUNOGLOBULIN G\HYALURONIDASE (HUMAN RECOMBINANT)
     Indication: Primary immunodeficiency syndrome
     Dosage: 30 GRAM, MONTHLY
     Route: 058
     Dates: start: 20220904, end: 20230609
  2. HUMAN IMMUNOGLOBULIN G\HYALURONIDASE RECOMBINANT HUMAN [Suspect]
     Active Substance: HUMAN IMMUNOGLOBULIN G\HYALURONIDASE (HUMAN RECOMBINANT)
     Dosage: 30 GRAM, Q4WEEKS
     Route: 058

REACTIONS (1)
  - Immune thrombocytopenia [Recovering/Resolving]
